FAERS Safety Report 21515435 (Version 1)
Quarter: 2022Q4

REPORT INFORMATION
  Report Type: Spontaneous
  Country: US (occurrence: None)
  Receive Date: 20221027
  Receipt Date: 20221027
  Transmission Date: 20230112
  Serious: No
  Sender: FDA-Public Use
  Company Number: None

PATIENT
  Age: 51 Year
  Sex: Male
  Weight: 75.15 kg

DRUGS (15)
  1. ARMODAFINIL [Suspect]
     Active Substance: ARMODAFINIL
     Indication: Sleep apnoea syndrome
     Dosage: OTHER QUANTITY : 60 TABLET(S);?
     Route: 048
  2. ARMODAFINIL [Suspect]
     Active Substance: ARMODAFINIL
     Indication: Attention deficit hyperactivity disorder
  3. CRESTOR [Concomitant]
     Active Substance: ROSUVASTATIN CALCIUM
  4. AMLODIPINE [Concomitant]
     Active Substance: AMLODIPINE BESYLATE
  5. DEVICE [Concomitant]
     Active Substance: DEVICE
  6. CLOMIPHENE [Concomitant]
     Active Substance: CLOMIPHENE
  7. STELARA [Concomitant]
     Active Substance: USTEKINUMAB
  8. NUVIGIL [Concomitant]
     Active Substance: ARMODAFINIL
  9. AMBIEN [Concomitant]
     Active Substance: ZOLPIDEM TARTRATE
  10. CLOBETASOL [Suspect]
     Active Substance: CLOBETASOL
  11. FLUOCINOLONE [Concomitant]
     Active Substance: FLUOCINOLONE
  12. VITAMIN D3 [Concomitant]
     Active Substance: CHOLECALCIFEROL
  13. VITAMIN K [Concomitant]
     Active Substance: PHYTONADIONE
  14. VITAMINS [Concomitant]
     Active Substance: VITAMINS
  15. FOLATE SODIUM [Concomitant]
     Active Substance: FOLATE SODIUM

REACTIONS (3)
  - Manufacturing issue [None]
  - Product quality issue [None]
  - Fatigue [None]

NARRATIVE: CASE EVENT DATE: 20220830
